FAERS Safety Report 12602970 (Version 2)
Quarter: 2016Q4

REPORT INFORMATION
  Report Type: Report from Study
  Country: US (occurrence: US)
  Receive Date: 20160728
  Receipt Date: 20161024
  Transmission Date: 20170207
  Serious: Yes (Death, Hospitalization)
  Sender: FDA-Public Use
  Company Number: US-BAYER-2016-114918

PATIENT
  Age: 67 Year
  Sex: Male

DRUGS (1)
  1. NEXAVAR [Suspect]
     Active Substance: SORAFENIB
     Indication: HEPATOCELLULAR CARCINOMA
     Dosage: 400 MG, BID
     Route: 048
     Dates: start: 20160520, end: 2016

REACTIONS (6)
  - Hepatic encephalopathy [None]
  - Abdominal pain [Fatal]
  - Respiratory failure [Fatal]
  - Mental status changes [Fatal]
  - Peritonitis bacterial [Fatal]
  - Bacteraemia [Fatal]

NARRATIVE: CASE EVENT DATE: 201606
